FAERS Safety Report 7248840-8 (Version None)
Quarter: 2011Q1

REPORT INFORMATION
  Report Type: 
  Country: None (occurrence: None)
  Receive Date: 20110128
  Receipt Date: 20110119
  Transmission Date: 20110831
  Serious: Yes (Disabling)
  Sender: FDA-Public Use
  Company Number: GB-RANBAXY-2011R1-41247

PATIENT
  Age: 47 Year
  Sex: Female
  Weight: 133 kg

DRUGS (19)
  1. LISINOPRIL [Concomitant]
     Dosage: UNK
     Route: 065
     Dates: start: 20100923, end: 20101021
  2. PREDNISOLONE [Concomitant]
     Indication: PRODUCT USED FOR UNKNOWN INDICATION
     Dosage: UNK
     Route: 065
     Dates: start: 20101220, end: 20101227
  3. BUDESONIDE [Concomitant]
     Dosage: UNK
     Route: 065
     Dates: start: 20101221, end: 20110101
  4. DICLOFENAC SODIUM [Concomitant]
     Indication: PRODUCT USED FOR UNKNOWN INDICATION
     Dosage: UNK
     Route: 065
     Dates: start: 20101221, end: 20110101
  5. TAMSULOSIN HYDROCHLORIDE [Concomitant]
     Indication: PRODUCT USED FOR UNKNOWN INDICATION
     Dosage: UNK
     Route: 065
     Dates: start: 20100923, end: 20101021
  6. DICLOFENAC SODIUM [Concomitant]
     Dosage: UNK
     Route: 065
     Dates: start: 20100923, end: 20101021
  7. DIFLAM [Concomitant]
     Indication: PRODUCT USED FOR UNKNOWN INDICATION
     Dosage: UNK
     Route: 065
     Dates: start: 20101230, end: 20110104
  8. FLUOXETINE [Concomitant]
     Indication: PRODUCT USED FOR UNKNOWN INDICATION
     Dosage: UNK
     Route: 065
     Dates: start: 20100921, end: 20101023
  9. PREDNISOLONE [Concomitant]
     Dosage: UNK
     Route: 065
     Dates: start: 20101230, end: 20110109
  10. CLARITHROMYCIN [Concomitant]
     Dosage: UNK
     Route: 065
     Dates: start: 20110104, end: 20110101
  11. OXYTETRACYCLINE [Concomitant]
     Indication: PRODUCT USED FOR UNKNOWN INDICATION
     Dosage: UNK
     Route: 065
     Dates: start: 20110107, end: 20110101
  12. VENTOLIN [Concomitant]
     Indication: PRODUCT USED FOR UNKNOWN INDICATION
     Dosage: UNK
     Route: 065
     Dates: start: 20110104
  13. AMLODIPINE [Concomitant]
     Indication: PRODUCT USED FOR UNKNOWN INDICATION
     Dosage: UNK
     Route: 065
     Dates: start: 20101221, end: 20110101
  14. AMLODIPINE [Concomitant]
     Dosage: UNK
     Route: 065
     Dates: start: 20100923, end: 20101021
  15. CLARITHROMYCIN [Suspect]
     Indication: PRODUCT USED FOR UNKNOWN INDICATION
     Dosage: UNK
     Route: 065
     Dates: start: 20110113
  16. FLUOXETINE [Concomitant]
     Dosage: UNK
     Route: 065
     Dates: start: 20101221, end: 20110101
  17. LISINOPRIL [Concomitant]
     Indication: PRODUCT USED FOR UNKNOWN INDICATION
     Dosage: UNK
     Route: 065
     Dates: start: 20101221, end: 20110101
  18. AMOXICILLIN [Concomitant]
     Indication: PRODUCT USED FOR UNKNOWN INDICATION
     Dosage: UNK
     Route: 065
     Dates: start: 20101220, end: 20101221
  19. BUDESONIDE [Concomitant]
     Indication: PRODUCT USED FOR UNKNOWN INDICATION
     Dosage: UNK
     Route: 065
     Dates: start: 20110104

REACTIONS (1)
  - JOINT SWELLING [None]
